FAERS Safety Report 11282073 (Version 1)
Quarter: 2015Q3

REPORT INFORMATION
  Report Type: Spontaneous
  Country: NZ (occurrence: NZ)
  Receive Date: 20150719
  Receipt Date: 20150719
  Transmission Date: 20151125
  Serious: Yes (Hospitalization, Other)
  Sender: FDA-Public Use
  Company Number: NZ-JNJFOC-20150707998

PATIENT

DRUGS (4)
  1. IBUPROFEN. [Interacting]
     Active Substance: IBUPROFEN
     Indication: PRODUCT USED FOR UNKNOWN INDICATION
     Route: 065
  2. PARACETAMOL [Suspect]
     Active Substance: ACETAMINOPHEN
     Route: 065
  3. PARACETAMOL [Suspect]
     Active Substance: ACETAMINOPHEN
     Indication: PRODUCT USED FOR UNKNOWN INDICATION
     Route: 065
  4. IBUPROFEN. [Interacting]
     Active Substance: IBUPROFEN
     Route: 065

REACTIONS (13)
  - Wrong patient received medication [Unknown]
  - Incorrect drug administration duration [Unknown]
  - Drug interaction [Unknown]
  - Incorrect route of drug administration [Unknown]
  - Incorrect dose administered [Unknown]
  - Incorrect drug dosage form administered [Unknown]
  - Medication error [Unknown]
  - Product packaging issue [Unknown]
  - Documented hypersensitivity to administered product [Unknown]
  - Wrong drug administered [Unknown]
  - Expired product administered [Unknown]
  - Product label issue [Unknown]
  - Drug dose omission [Unknown]
